FAERS Safety Report 9127912 (Version 1)
Quarter: 2013Q1

REPORT INFORMATION
  Report Type: Spontaneous
  Country: US (occurrence: US)
  Receive Date: 20130228
  Receipt Date: 20130228
  Transmission Date: 20140127
  Serious: No
  Sender: FDA-Public Use
  Company Number: US-BRISTOL-MYERS SQUIBB COMPANY-17320326

PATIENT
  Age: 78 Year
  Sex: Male

DRUGS (1)
  1. KOMBIGLYZE XR [Suspect]
     Dosage: 1DF= 5/2000 UNIT NOS?5MG/1000MG, BOTTLE?TABS
     Dates: start: 20121009

REACTIONS (1)
  - Glycosylated haemoglobin increased [Unknown]
